FAERS Safety Report 8440461-4 (Version None)
Quarter: 2012Q2

REPORT INFORMATION
  Report Type: 
  Country: None (occurrence: None)
  Receive Date: 20120615
  Receipt Date: 20120607
  Transmission Date: 20120825
  Serious: Yes (Other)
  Sender: FDA-Public Use
  Company Number: US-GLAXOSMITHKLINE-A0980467A

PATIENT
  Age: 27 Year
  Sex: Male

DRUGS (4)
  1. ALPRAZOLAM [Concomitant]
  2. VENTOLIN [Suspect]
     Indication: ASTHMA
     Dosage: 2PUFF SIX TIMES PER DAY
     Route: 055
     Dates: start: 20120220
  3. DAYQUIL [Concomitant]
  4. ADVAIR DISKUS 100/50 [Suspect]
     Indication: ASTHMA
     Dosage: 1PUFF TWICE PER DAY
     Route: 055
     Dates: start: 20120505, end: 20120508

REACTIONS (5)
  - SHOCK [None]
  - ASTHMA [None]
  - FEELING JITTERY [None]
  - SPEECH DISORDER [None]
  - OVERDOSE [None]
